FAERS Safety Report 6403991-2 (Version None)
Quarter: 2009Q4

REPORT INFORMATION
  Report Type: 
  Country: None (occurrence: None)
  Receive Date: 20091016
  Receipt Date: 20090714
  Transmission Date: 20100525
  Serious: No
  Sender: FDA-Public Use
  Company Number: US-ALEXION-A200900570

PATIENT
  Sex: Male

DRUGS (21)
  1. SOLIRIS [Suspect]
     Indication: PAROXYSMAL NOCTURNAL HAEMOGLOBINURIA
     Dosage: 600 MG, QW
     Route: 042
     Dates: start: 20081125, end: 20081223
  2. SOLIRIS [Suspect]
     Dosage: 900 MG, Q2W
     Route: 042
     Dates: start: 20081230
  3. TORSEMIDE [Concomitant]
     Dosage: 20 MG, BID
     Route: 048
  4. REQUIP [Concomitant]
     Dosage: 1 MG, TID
     Route: 048
  5. COREG [Concomitant]
     Dosage: 12.5 MG, BID
     Route: 048
  6. COLCHICINE [Concomitant]
     Dosage: 0.6 MG, BID
     Route: 048
  7. ALLOPURINOL [Concomitant]
     Dosage: 300 MG, QD
     Route: 048
  8. ASPIRIN [Concomitant]
     Dosage: 81 MG, 3/W
     Route: 048
  9. COMBIVENT [Concomitant]
     Dosage: 2 PUFFS, QD
  10. BROVANA INHALATION SOLUTION [Concomitant]
     Dosage: UNK
  11. GLIPIZIDE [Concomitant]
     Dosage: 10 MG, BID
     Route: 048
  12. AVANDIA                            /01445801/ [Concomitant]
     Dosage: 4 MG, BID
     Route: 048
  13. VITAMIN B12                        /00056201/ [Concomitant]
     Dosage: 1000 UG, MONTHLY
  14. B COMPLEX                          /00212701/ [Concomitant]
     Dosage: 1 ON EVEN DAYS
     Route: 048
  15. PREDNISONE [Concomitant]
     Dosage: 10 MG, QOD
     Route: 048
  16. PRILOSEC [Concomitant]
     Dosage: 2, QD
     Route: 048
  17. COUMADIN [Concomitant]
     Dosage: 5 MG, QD
     Route: 048
  18. ACETAMINOPHEN W/ CODEINE [Concomitant]
     Dosage: PRN
     Route: 048
  19. KLOR-CON [Concomitant]
     Dosage: 10 MG, QD
     Route: 048
  20. PRAVACHOL [Concomitant]
     Dosage: 80 MG, QD
     Route: 048
  21. MAVIK [Concomitant]
     Dosage: 1 MG, QD
     Route: 048

REACTIONS (3)
  - BILIARY DYSKINESIA [None]
  - FATIGUE [None]
  - HAEMOGLOBINURIA [None]
